FAERS Safety Report 4794326-X (Version None)
Quarter: 2005Q4

REPORT INFORMATION
  Report Type: 
  Country: None (occurrence: None)
  Receive Date: 20051007
  Receipt Date: 20051007
  Transmission Date: 20060501
  Serious: Yes (Hospitalization)
  Sender: FDA-Public Use
  Company Number: None

PATIENT
  Age: 34 Year
  Sex: Female
  Weight: 61 kg

DRUGS (17)
  1. CAMPATH [Suspect]
     Dosage: 30 MG IV DRIP
     Route: 041
  2. PROGRAF [Concomitant]
  3. AMBIEN [Concomitant]
  4. ASPIRIN [Concomitant]
  5. CALCIUM WITH VITAMIN D [Concomitant]
  6. CELLCEPT [Concomitant]
  7. HUMALOG [Concomitant]
  8. LANTUS [Concomitant]
  9. LEVAQUIN [Concomitant]
  10. LIPITOR [Concomitant]
  11. MYCELEX [Concomitant]
  12. NORVASC [Concomitant]
  13. PROTONIX [Concomitant]
  14. SYNTHROID [Concomitant]
  15. TOPROL-XL [Concomitant]
  16. SDOIUM BICARB [Concomitant]
  17. VALCYTE [Concomitant]

REACTIONS (1)
  - NO ADVERSE DRUG EFFECT [None]
